FAERS Safety Report 8272654-3 (Version None)
Quarter: 2012Q2

REPORT INFORMATION
  Report Type: 
  Country: None (occurrence: None)
  Receive Date: 20120410
  Receipt Date: 20120403
  Transmission Date: 20120825
  Serious: Yes (Life-Threatening, Other)
  Sender: FDA-Public Use
  Company Number: FR-BRISTOL-MYERS SQUIBB COMPANY-16501967

PATIENT
  Age: 68 Year
  Sex: Male

DRUGS (14)
  1. ACETAMINOPHEN [Concomitant]
  2. PLAVIX [Suspect]
     Indication: CARDIAC DISORDER
     Route: 048
     Dates: start: 20050101, end: 20110101
  3. PANTOPRAZOLE SODIUM [Suspect]
     Route: 048
     Dates: start: 20070802
  4. TENORMIN [Concomitant]
  5. IRON [Concomitant]
  6. CALCIUM CARBONATE [Concomitant]
  7. IRBESARTAN [Suspect]
     Indication: CARDIAC DISORDER
     Route: 048
     Dates: start: 20070802, end: 20111125
  8. RENAGEL [Suspect]
     Indication: HYPERPHOSPHATAEMIA
     Dosage: 2AUG07-11OCT10 3YEARS,50 DAYS FROM 11OCT10-29NOV10
     Route: 048
     Dates: start: 20070802
  9. PRAVASTATIN [Concomitant]
  10. TRAMADOL HCL [Concomitant]
  11. LYRICA [Concomitant]
     Indication: DIABETIC NEUROPATHY
  12. KAYEXALATE [Concomitant]
  13. LIDOCAINE [Concomitant]
  14. CLARITIN [Concomitant]

REACTIONS (5)
  - NEUTROPENIA [None]
  - STAPHYLOCOCCAL SEPSIS [None]
  - SKIN ULCER [None]
  - KLEBSIELLA INFECTION [None]
  - TOE AMPUTATION [None]
